FAERS Safety Report 14297037 (Version 4)
Quarter: 2018Q4

REPORT INFORMATION
  Report Type: Report from Study
  Country: JP (occurrence: JP)
  Receive Date: 20171218
  Receipt Date: 20181211
  Transmission Date: 20190204
  Serious: Yes (Death, Other)
  Sender: FDA-Public Use
  Company Number: JP-GLAXOSMITHKLINE-JP2017JPN192838

PATIENT
  Age: 9 Decade
  Sex: Female

DRUGS (23)
  1. XYZAL TABLETS [Concomitant]
     Dosage: 5 MG, BID
     Dates: start: 20110715
  2. PREDONINE [Concomitant]
     Active Substance: PREDNISOLONE
     Indication: ASTHMA
     Dosage: UNK
  3. NICORANDIL TABLET [Concomitant]
     Dosage: 10 MG, BID
  4. FUROSEMIDE TABLETS [Concomitant]
     Active Substance: FUROSEMIDE
     Dosage: 20 MG, QD
  5. MEPOLIZUMAB [Suspect]
     Active Substance: MEPOLIZUMAB
     Indication: ASTHMA
     Dosage: 100 MG, QD
     Route: 058
     Dates: start: 20171005, end: 20171005
  6. BENIDIPINE HYDROCHLORIDE [Concomitant]
     Active Substance: BENIDIPINE HYDROCHLORIDE
     Dosage: 4 MG, QD
  7. ALENDRONATE TABLETS [Concomitant]
     Dosage: 35 MG, WE
  8. MITIGLINIDE CALCIUM HYDRATE [Concomitant]
     Active Substance: MITIGLINIDE CALCIUM HYDRATE
     Dosage: 10 MG, TID
  9. MEPOLIZUMAB [Suspect]
     Active Substance: MEPOLIZUMAB
     Dosage: 100 MG, QD
     Route: 058
     Dates: start: 20171109, end: 20171109
  10. LINOLOSAL [Concomitant]
     Active Substance: BETAMETHASONE SODIUM PHOSPHATE
     Dosage: UNK
  11. UNIPHYL LA [Concomitant]
     Active Substance: THEOPHYLLINE ANHYDROUS
     Dosage: UNK, BID
  12. AMBROXOL HYDROCHLORIDE OD [Concomitant]
     Dosage: 45 MG, QD
  13. VESICARE OD TABLETS [Concomitant]
     Dosage: 2.5 MG, QD
  14. NEXIUM CAPSULE [Concomitant]
     Dosage: 20 MG, QD
  15. BROTIZOLAM [Concomitant]
     Active Substance: BROTIZOLAM
     Dosage: 0.25 MG, QD
  16. SPIRONOLACTONE TABLETS [Concomitant]
     Active Substance: SPIRONOLACTONE
     Dosage: 25 MG, QD
  17. RELVAR ELLIPTA [Concomitant]
     Active Substance: FLUTICASONE FUROATE\VILANTEROL TRIFENATATE
     Dosage: 200 ?G, QD
     Dates: start: 20171111
  18. SOLANTAL TABLETS [Concomitant]
     Active Substance: TIARAMIDE HYDROCHLORIDE
     Dosage: 100 MG, TID
  19. MOSAPRIDE CITRATE TABLETS [Concomitant]
     Active Substance: MOSAPRIDE CITRATE
     Dosage: 5 MG, TID
  20. PRANLUKAST TABLET [Concomitant]
     Dosage: 225 MG, BID
  21. CLARITHROMYCIN TABLETS [Concomitant]
     Active Substance: CLARITHROMYCIN
     Dosage: 200 MG, QD
  22. EDIROL CAPSULE [Concomitant]
     Dosage: 0.75 ?G, QD
  23. GLACTIV [Concomitant]
     Active Substance: SITAGLIPTIN
     Dosage: 50 MG, QD

REACTIONS (1)
  - Eosinophilic granulomatosis with polyangiitis [Fatal]

NARRATIVE: CASE EVENT DATE: 20171203
